FAERS Safety Report 4864641-X (Version None)
Quarter: 2005Q4

REPORT INFORMATION
  Report Type: 
  Country: None (occurrence: None)
  Receive Date: 20051201
  Receipt Date: 20050703
  Transmission Date: 20060501
  Serious: No
  Sender: FDA-Public Use
  Company Number: 2005PV000242

PATIENT
  Sex: Male

DRUGS (6)
  1. BYETTA [Suspect]
     Indication: DIABETES MELLITUS NON-INSULIN-DEPENDENT
     Dosage: 5 UG; BID; SC
     Route: 058
     Dates: start: 20050701
  2. AMARYL [Concomitant]
  3. METFORMIN [Concomitant]
  4. ZOCOR [Concomitant]
  5. TRICOR [Concomitant]
  6. PROZAC [Concomitant]

REACTIONS (1)
  - BLOOD GLUCOSE INCREASED [None]
